FAERS Safety Report 13080273 (Version 4)
Quarter: 2018Q4

REPORT INFORMATION
  Report Type: Report from Study
  Country: JP (occurrence: JP)
  Receive Date: 20170103
  Receipt Date: 20181219
  Transmission Date: 20190204
  Serious: Yes (Other)
  Sender: FDA-Public Use
  Company Number: JP-OTSUKA-2015_004682

PATIENT
  Age: 57 Year
  Sex: Male
  Weight: 67.3 kg

DRUGS (25)
  1. TOLVAPTAN [Suspect]
     Active Substance: TOLVAPTAN
     Dosage: 30 MG, QD, IN THE MORNING
     Route: 048
     Dates: start: 20141201, end: 20150109
  2. TOLVAPTAN [Suspect]
     Active Substance: TOLVAPTAN
     Dosage: 15 MG, QD, IN THE EVENING
     Route: 048
     Dates: start: 20151010, end: 20160819
  3. ARGAMATE [Concomitant]
     Active Substance: CALCIUM POLYSTYRENE SULFONATE
     Indication: HYPERKALAEMIA
     Dosage: 50 G, QD
     Route: 048
     Dates: start: 20161015, end: 20180817
  4. TOLVAPTAN [Suspect]
     Active Substance: TOLVAPTAN
     Dosage: 15 MG, QD, IN THE EVENING
     Route: 048
     Dates: start: 20150110, end: 20150605
  5. TOLVAPTAN [Suspect]
     Active Substance: TOLVAPTAN
     Dosage: 15 MG, QD, IN THE EVENING
     Route: 048
     Dates: start: 20150606, end: 20151009
  6. TOLVAPTAN [Suspect]
     Active Substance: TOLVAPTAN
     Dosage: 45 MG, QD, IN THE MORNING
     Route: 048
     Dates: start: 20151010, end: 20160819
  7. URALYT [Concomitant]
     Active Substance: POTASSIUM CITRATE\TRISODIUM CITRATE DIHYDRATE
     Indication: PRODUCT USED FOR UNKNOWN INDICATION
     Dosage: 3 DF, QD
     Route: 048
     Dates: end: 20160909
  8. FEBURIC [Concomitant]
     Active Substance: FEBUXOSTAT
     Indication: PRODUCT USED FOR UNKNOWN INDICATION
     Dosage: 10 MG, QD
     Route: 048
     Dates: end: 20160630
  9. TOLVAPTAN [Suspect]
     Active Substance: TOLVAPTAN
     Dosage: 30 MG, QD, IN THE MORNING
     Route: 048
     Dates: start: 20150110, end: 20150605
  10. ADALAT [Concomitant]
     Active Substance: NIFEDIPINE
     Indication: PRODUCT USED FOR UNKNOWN INDICATION
     Dosage: 40 MG, QD
     Route: 048
     Dates: end: 20180915
  11. AZILVA [Concomitant]
     Active Substance: AZILSARTAN KAMEDOXOMIL
     Indication: PRODUCT USED FOR UNKNOWN INDICATION
     Dosage: 20 MG, QD
     Route: 048
     Dates: start: 20150204
  12. TOLVAPTAN [Suspect]
     Active Substance: TOLVAPTAN
     Dosage: 37.5 MG, QD, IN THE MORNING
     Route: 048
     Dates: start: 20150606, end: 20151009
  13. TOLVAPTAN [Suspect]
     Active Substance: TOLVAPTAN
     Dosage: 60MG/DAY, DIVIDED INTO 2 DOSES (EACH DOSE UNK)
     Route: 048
     Dates: start: 20170826, end: 20180519
  14. URIADEC [Concomitant]
     Active Substance: TOPIROXOSTAT
     Dosage: 4 TABLETS, QD
     Route: 048
     Dates: start: 20170905
  15. ARGAMATE [Concomitant]
     Active Substance: CALCIUM POLYSTYRENE SULFONATE
     Dosage: 25 G, QD
     Route: 048
     Dates: start: 20180818
  16. TOLVAPTAN [Suspect]
     Active Substance: TOLVAPTAN
     Indication: CONGENITAL CYSTIC KIDNEY DISEASE
     Dosage: 60MG/DAY, DIVIDED INTO 2 DOSES
     Route: 048
     Dates: start: 20160917, end: 20170722
  17. TOLVAPTAN [Suspect]
     Active Substance: TOLVAPTAN
     Dosage: 15 MG, QD, IN THE MORNING
     Route: 048
     Dates: start: 20141007, end: 20141109
  18. TOLVAPTAN [Suspect]
     Active Substance: TOLVAPTAN
     Dosage: 7.5 MG, QD, IN THE EVENING
     Route: 048
     Dates: start: 20141007, end: 20141109
  19. TOLVAPTAN [Suspect]
     Active Substance: TOLVAPTAN
     Dosage: 7.5 MG, QD, IN THE EVENING
     Route: 048
     Dates: start: 20141110, end: 20141130
  20. PROTECADIN [Concomitant]
     Active Substance: LAFUTIDINE
     Indication: PRODUCT USED FOR UNKNOWN INDICATION
     Dosage: 20 MG, QD
     Route: 048
  21. KREMEZIN [Concomitant]
     Active Substance: ACTIVATED CHARCOAL
     Indication: PRODUCT USED FOR UNKNOWN INDICATION
     Dosage: 6 G, QD
     Route: 048
  22. TOLVAPTAN [Suspect]
     Active Substance: TOLVAPTAN
     Dosage: 22.5 MG, QD, IN THE MORNING
     Route: 048
     Dates: start: 20141110, end: 20141130
  23. TOLVAPTAN [Suspect]
     Active Substance: TOLVAPTAN
     Dosage: 7.5 MG, QD, IN THE EVENING
     Route: 048
     Dates: start: 20141201, end: 20150109
  24. URIADEC [Concomitant]
     Active Substance: TOPIROXOSTAT
     Indication: PRODUCT USED FOR UNKNOWN INDICATION
     Dosage: 40 MG, QD
     Route: 048
     Dates: start: 20160701, end: 20170904
  25. CARDENALIN [Concomitant]
     Active Substance: DOXAZOSIN MESYLATE
     Indication: HYPERTENSION
     Dosage: UNK
     Route: 048
     Dates: start: 20161217, end: 20170225

REACTIONS (8)
  - Renal impairment [Recovered/Resolved]
  - Blood sodium increased [Recovering/Resolving]
  - Hypernatraemia [Recovered/Resolved]
  - Hypernatraemia [Recovered/Resolved]
  - Renal impairment [Not Recovered/Not Resolved]
  - Blood urea increased [Not Recovered/Not Resolved]
  - Gamma-glutamyltransferase increased [Not Recovered/Not Resolved]
  - Hyperkalaemia [Recovered/Resolved]

NARRATIVE: CASE EVENT DATE: 20150325
